FAERS Safety Report 6332400-7 (Version None)
Quarter: 2009Q3

REPORT INFORMATION
  Report Type: 
  Country: None (occurrence: None)
  Receive Date: 20090827
  Receipt Date: 20090827
  Transmission Date: 20100115
  Serious: Yes (Life-Threatening)
  Sender: FDA-Public Use
  Company Number: None

PATIENT
  Sex: Male
  Weight: 72.5755 kg

DRUGS (1)
  1. DILTIAZEM [Suspect]
     Indication: BLOOD PRESSURE
     Dates: start: 20090414, end: 20090801

REACTIONS (7)
  - DRUG TOXICITY [None]
  - DYSPNOEA [None]
  - ECONOMIC PROBLEM [None]
  - FATIGUE [None]
  - HEART RATE IRREGULAR [None]
  - JOINT SWELLING [None]
  - SYNCOPE [None]
